FAERS Safety Report 4394346-3 (Version None)
Quarter: 2004Q3

REPORT INFORMATION
  Report Type: 
  Country: None (occurrence: None)
  Receive Date: 20040712
  Receipt Date: 20040628
  Transmission Date: 20050211
  Serious: Yes (Hospitalization, Other)
  Sender: FDA-Public Use
  Company Number: FR-BRISTOL-MYERS SQUIBB COMPANY-12629960

PATIENT
  Age: 56 Year
  Sex: Male

DRUGS (10)
  1. GLUCOPHAGE [Suspect]
     Indication: DIABETES MELLITUS NON-INSULIN-DEPENDENT
     Route: 048
  2. ELISOR [Suspect]
     Indication: DYSLIPIDAEMIA
     Route: 048
  3. OFLOCET [Suspect]
     Indication: SUPERINFECTION
     Route: 048
     Dates: start: 20040426, end: 20040516
  4. STILNOX [Suspect]
     Route: 048
  5. TRIATEC [Suspect]
     Indication: ESSENTIAL HYPERTENSION
     Route: 048
  6. GLUCOR [Suspect]
     Indication: DIABETES MELLITUS NON-INSULIN-DEPENDENT
     Route: 048
  7. ALLOPURINOL TAB [Concomitant]
     Indication: GOUT
     Route: 048
  8. ASPIRIN [Concomitant]
     Route: 048
  9. TRAMADOL HCL [Concomitant]
     Route: 048
  10. TANAKAN [Concomitant]

REACTIONS (4)
  - INFECTED SKIN ULCER [None]
  - PURPURA [None]
  - STAPHYLOCOCCAL INFECTION [None]
  - VASCULAR PURPURA [None]
